FAERS Safety Report 7377381-2 (Version None)
Quarter: 2011Q1

REPORT INFORMATION
  Report Type: 
  Country: None (occurrence: None)
  Receive Date: 20110328
  Receipt Date: 20110324
  Transmission Date: 20110831
  Serious: No
  Sender: FDA-Public Use
  Company Number: US-PFIZER INC-2011067145

PATIENT
  Sex: Male
  Weight: 77.1 kg

DRUGS (4)
  1. LIPITOR [Suspect]
     Indication: BLOOD CHOLESTEROL ABNORMAL
     Dosage: 10 MG, UNK
     Route: 048
  2. PLAVIX [Concomitant]
     Dosage: UNK
     Route: 048
     Dates: start: 20101106
  3. VALTREX [Concomitant]
     Indication: ORAL HERPES
     Dosage: UNK
     Route: 048
     Dates: start: 20110101
  4. LIPITOR [Suspect]
     Dosage: 20 MG, UNK

REACTIONS (1)
  - DRUG INEFFECTIVE [None]
